FAERS Safety Report 16068034 (Version 1)
Quarter: 2019Q1

REPORT INFORMATION
  Report Type: Spontaneous
  Country: IT (occurrence: IT)
  Receive Date: 20190313
  Receipt Date: 20190313
  Transmission Date: 20190418
  Serious: Yes (Other)
  Sender: FDA-Public Use
  Company Number: IT-PFIZER INC-2019108330

PATIENT
  Age: 57 Year
  Sex: Female
  Weight: 60 kg

DRUGS (4)
  1. XANAX [Suspect]
     Active Substance: ALPRAZOLAM
     Dosage: UNK (DOSAGE FORM: UNSPECIFIED)
     Route: 065
  2. HALDOL [Suspect]
     Active Substance: HALOPERIDOL
     Dosage: 30 MG, SINGLE (TOTAL) (6 TABLET OF 5 MG)
     Route: 048
     Dates: start: 20190217
  3. HALDOL [Suspect]
     Active Substance: HALOPERIDOL
     Dosage: UNK
     Route: 048
  4. XANAX [Suspect]
     Active Substance: ALPRAZOLAM
     Dosage: UNK (DOSAGE FORM: UNSPECIFIED)
     Route: 065
     Dates: start: 20190217

REACTIONS (4)
  - Intentional self-injury [Unknown]
  - Intentional overdose [Unknown]
  - Arrhythmia [Unknown]
  - Sopor [Unknown]

NARRATIVE: CASE EVENT DATE: 20190217
